FAERS Safety Report 7955225-5 (Version None)
Quarter: 2011Q4

REPORT INFORMATION
  Report Type: 
  Country: None (occurrence: None)
  Receive Date: 20111202
  Receipt Date: 20111130
  Transmission Date: 20120403
  Serious: Yes (Death, Hospitalization)
  Sender: FDA-Public Use
  Company Number: US-B.I. PHARMACEUTICALS,INC./RIDGEFIELD-2011-BP-26042BP

PATIENT
  Age: 81 Year
  Sex: Female
  Weight: 52.16 kg

DRUGS (5)
  1. METOPROLOL TARTRATE [Concomitant]
     Dosage: 100 MG
  2. PRADAXA [Suspect]
     Indication: ATRIAL FIBRILLATION
     Dosage: 300 MG
     Dates: start: 20111003
  3. OMEPRAZOLE [Concomitant]
     Dosage: 20 MG
  4. CLARITIN [Concomitant]
     Dosage: 10 MG
  5. AMIODARONE HCL [Concomitant]
     Dosage: 100 MG

REACTIONS (2)
  - DEATH [None]
  - HAEMORRHAGIC STROKE [None]
